FAERS Safety Report 24793217 (Version 1)
Quarter: 2024Q4

REPORT INFORMATION
  Report Type: Spontaneous
  Country: CA (occurrence: CA)
  Receive Date: 20241231
  Receipt Date: 20241231
  Transmission Date: 20250115
  Serious: Yes (Other)
  Sender: ACCORD
  Company Number: None

PATIENT
  Age: 59 Year
  Sex: Female

DRUGS (11)
  1. METHOTREXATE [Suspect]
     Active Substance: METHOTREXATE
     Indication: Product used for unknown indication
     Route: 065
  2. ASCORBIC ACID [Concomitant]
     Active Substance: ASCORBIC ACID
  3. CALCIUM [Concomitant]
     Active Substance: CALCIUM
  4. ENBREL [Concomitant]
     Active Substance: ETANERCEPT
  5. FOLIC ACID [Concomitant]
     Active Substance: FOLIC ACID
  6. MENAQUINONE 5 [Concomitant]
     Active Substance: MENAQUINONE 5
  7. PREDNISONE [Concomitant]
     Active Substance: PREDNISONE
  8. RITUXIMAB [Concomitant]
     Active Substance: RITUXIMAB
  9. HERBALS\TURMERIC [Concomitant]
     Active Substance: HERBALS\TURMERIC
  10. TYLENOL [Concomitant]
     Active Substance: ACETAMINOPHEN
  11. VITAMIN B12 [Concomitant]
     Active Substance: CYANOCOBALAMIN

REACTIONS (6)
  - Arthrodesis [Unknown]
  - Tender joint count increased [Unknown]
  - Pneumonitis [Unknown]
  - Hip arthroplasty [Unknown]
  - Elbow operation [Unknown]
  - Joint swelling [Unknown]
